FAERS Safety Report 7680014-9 (Version None)
Quarter: 2011Q3

REPORT INFORMATION
  Report Type: 
  Country: None (occurrence: None)
  Receive Date: 20110812
  Receipt Date: 20110803
  Transmission Date: 20111222
  Serious: Yes (Hospitalization)
  Sender: FDA-Public Use
  Company Number: US-NOVOPROD-329128

PATIENT
  Sex: Female
  Weight: 136.5 kg

DRUGS (13)
  1. LANTUS [Concomitant]
     Indication: TYPE 2 DIABETES MELLITUS
     Dosage: 90 U, BID AM + PM
  2. NOVOLOG MIX 70/30 [Suspect]
     Indication: TYPE 2 DIABETES MELLITUS
     Dosage: SLIDING SCALE BEFORE MEALS
     Route: 058
     Dates: start: 20100406
  3. ULORIC [Concomitant]
     Indication: GOUT
  4. ALPRAZOLAM [Concomitant]
     Indication: PRODUCT USED FOR UNKNOWN INDICATION
     Dosage: 1 MG, QID
     Route: 048
  5. LIPITOR [Concomitant]
     Indication: PRODUCT USED FOR UNKNOWN INDICATION
     Dosage: 40 MG, QD @ BEDTIME
     Route: 048
  6. LOTENSIN                           /00498401/ [Concomitant]
     Indication: BLOOD PRESSURE
     Dosage: 20 MG, QD
     Route: 048
  7. KETOCONAZOLE [Concomitant]
     Indication: ANTIFUNGAL TREATMENT
     Dosage: 2%
     Route: 061
  8. CYMBALTA [Concomitant]
     Indication: PRODUCT USED FOR UNKNOWN INDICATION
     Dosage: 120 MG, QD
     Route: 048
  9. NORVASC [Concomitant]
     Indication: BLOOD PRESSURE
     Dosage: 10 MG, QD IN MORNING
  10. TRAZODONE HCL [Concomitant]
     Indication: PRODUCT USED FOR UNKNOWN INDICATION
     Dosage: 150 MG, QD AT BEDTIME
     Route: 048
  11. NITROFURANTOIN [Concomitant]
     Indication: INCONTINENCE
     Dosage: 50 MG, QD AT BEDTIME
     Route: 048
  12. MULTIPLE VITAMINS [Concomitant]
     Indication: PRODUCT USED FOR UNKNOWN INDICATION
     Dosage: 1 TAB, QD
     Route: 048
  13. PRILOSEC [Concomitant]
     Indication: GASTROOESOPHAGEAL REFLUX DISEASE
     Dosage: 20 MG, QD BEFORE BREAKFAST
     Route: 048

REACTIONS (2)
  - FLUID RETENTION [None]
  - PERICARDIAL EFFUSION [None]
